FAERS Safety Report 6644595-6 (Version None)
Quarter: 2010Q1

REPORT INFORMATION
  Report Type: 
  Country: None (occurrence: None)
  Receive Date: 20100322
  Receipt Date: 20100315
  Transmission Date: 20100710
  Serious: Yes (Death)
  Sender: FDA-Public Use
  Company Number: TR-ELI_LILLY_AND_COMPANY-TR201003003946

PATIENT
  Sex: Male

DRUGS (4)
  1. HUMULIN N [Suspect]
     Indication: DIABETES MELLITUS
     Dosage: 6 U, EACH MORNING
     Route: 058
     Dates: start: 20090501
  2. ADALAT [Concomitant]
     Indication: HYPERTENSION
     Dosage: 30 MG, 2/D
     Route: 048
  3. LANZOPRAL [Concomitant]
     Dosage: UNK, DAILY (1/D)
     Route: 048
  4. PREDNISOLONE [Concomitant]
     Dosage: 4 MG, DAILY (1/D)
     Route: 048

REACTIONS (1)
  - RENAL FAILURE [None]
